FAERS Safety Report 24865149 (Version 1)
Quarter: 2025Q1

REPORT INFORMATION
  Report Type: Spontaneous
  Country: US (occurrence: US)
  Receive Date: 20250121
  Receipt Date: 20250121
  Transmission Date: 20250409
  Serious: No
  Sender: BIOGEN
  Company Number: US-BIOGEN-2024BI01273486

PATIENT
  Sex: Female

DRUGS (1)
  1. SKYCLARYS [Suspect]
     Active Substance: OMAVELOXOLONE
     Indication: Friedreich^s ataxia
     Dosage: 3 CAPS PO OD
     Route: 050
     Dates: start: 20240515

REACTIONS (5)
  - Friedreich^s ataxia [Unknown]
  - Speech disorder [Unknown]
  - Coordination abnormal [Unknown]
  - Syncope [Recovered/Resolved]
  - Product dose omission in error [Unknown]
